FAERS Safety Report 8821838 (Version 1)
Quarter: 2012Q4

REPORT INFORMATION
  Report Type: 
  Country: US (occurrence: US)
  Receive Date: 20121002
  Receipt Date: 20121002
  Transmission Date: 20130627
  Serious: Yes (Other)
  Sender: FDA-Public Use
  Company Number: US-MYLANLABS-2012S1019680

PATIENT
  Age: 57 Year
  Sex: Male

DRUGS (1)
  1. LITHIUM [Suspect]
     Indication: BIPOLAR DISORDER
     Route: 065

REACTIONS (2)
  - Nephropathy [Unknown]
  - Renal cyst [Unknown]
